FAERS Safety Report 8460285-1 (Version None)
Quarter: 2012Q2

REPORT INFORMATION
  Report Type: 
  Country: None (occurrence: None)
  Receive Date: 20120622
  Receipt Date: 20120612
  Transmission Date: 20120825
  Serious: Yes (Other)
  Sender: FDA-Public Use
  Company Number: US-ACTELION-A-US2012-65690

PATIENT

DRUGS (2)
  1. TRACLEER [Suspect]
     Indication: PULMONARY ARTERIAL HYPERTENSION
     Dosage: UNK
     Route: 048
     Dates: start: 20120123
  2. OXYGEN [Concomitant]

REACTIONS (5)
  - LOSS OF CONSCIOUSNESS [None]
  - NECK INJURY [None]
  - FLUID RETENTION [None]
  - FALL [None]
  - SYNCOPE [None]
